FAERS Safety Report 8348549-3 (Version None)
Quarter: 2012Q2

REPORT INFORMATION
  Report Type: 
  Country: None (occurrence: None)
  Receive Date: 20120509
  Receipt Date: 20120423
  Transmission Date: 20120825
  Serious: Yes (Death)
  Sender: FDA-Public Use
  Company Number: PHHY2009KR30978

PATIENT
  Sex: Female
  Weight: 61 kg

DRUGS (1)
  1. EXJADE [Suspect]
     Indication: APLASTIC ANAEMIA
     Dosage: 20MG/KG DAILY
     Route: 048
     Dates: start: 20070428, end: 20090129

REACTIONS (2)
  - LIVER FUNCTION TEST ABNORMAL [None]
  - DEATH [None]
